FAERS Safety Report 11091441 (Version 1)
Quarter: 2015Q2

REPORT INFORMATION
  Report Type: Spontaneous
  Country: US (occurrence: None)
  Receive Date: 20150504
  Receipt Date: 20150504
  Transmission Date: 20150821
  Serious: Yes (Other)
  Sender: FDA-Public Use
  Company Number: None

PATIENT
  Age: 51 Year
  Sex: Female
  Weight: 92.53 kg

DRUGS (16)
  1. PRENATAL PLUS [Concomitant]
     Active Substance: .ALPHA.-TOCOPHEROL ACETATE, DL-\.BETA.-CAROTENE\ASCORBIC ACID\CALCIUM CARBONATE\CHOLECALCIFEROL\CUPRIC OXIDE\CYANOCOBALAMIN\FERROUS FUMARATE\FOLIC ACID\NIACINAMIDE\PYRIDOXINE HYDROCHLORIDE\RIBOFLAVIN\THIAMINE MONONITRATE\VITAMIN A ACETATE\ZINC OXIDE
  2. BELSOMRA [Suspect]
     Active Substance: SUVOREXANT
     Indication: INSOMNIA
     Route: 048
     Dates: start: 20150502, end: 20150502
  3. LEVOTHYROXINE [Concomitant]
     Active Substance: LEVOTHYROXINE
  4. ESTRADIOL. [Concomitant]
     Active Substance: ESTRADIOL
  5. BELSOMRA [Concomitant]
     Active Substance: SUVOREXANT
  6. ALBUTERO INHALER [Concomitant]
  7. HYDROCODONE [Concomitant]
     Active Substance: HYDROCODONE
  8. IBUPROFEN. [Concomitant]
     Active Substance: IBUPROFEN
  9. MONTELUKAST [Concomitant]
     Active Substance: MONTELUKAST SODIUM
  10. ALIGN [Suspect]
     Active Substance: BIFIDOBACTERIUM LONGUM SUBSP. INFANTIS
  11. PROPRANOLOL [Concomitant]
     Active Substance: PROPRANOLOL\PROPRANOLOL HYDROCHLORIDE
  12. VITAMIN D [Concomitant]
     Active Substance: CHOLECALCIFEROL
  13. TRAMADOL [Concomitant]
     Active Substance: TRAMADOL
  14. CYCLOBENZAPRINE [Concomitant]
     Active Substance: CYCLOBENZAPRINE
  15. RETIN-A [Concomitant]
     Active Substance: TRETINOIN
  16. BENZONATATE. [Concomitant]
     Active Substance: BENZONATATE

REACTIONS (9)
  - Agitation [None]
  - Time perception altered [None]
  - Heart rate increased [None]
  - Formication [None]
  - Hallucination [None]
  - Throat tightness [None]
  - Anxiety [None]
  - Confusional state [None]
  - Drug ineffective [None]

NARRATIVE: CASE EVENT DATE: 20150502
